FAERS Safety Report 15685958 (Version 2)
Quarter: 2019Q1

REPORT INFORMATION
  Report Type: Spontaneous
  Country: US (occurrence: US)
  Receive Date: 20181204
  Receipt Date: 20190208
  Transmission Date: 20190417
  Serious: Yes (Other)
  Sender: FDA-Public Use
  Company Number: US-SA-2018SA325511

PATIENT
  Age: 50 Year
  Sex: Female
  Weight: 72 kg

DRUGS (15)
  1. TAXOTERE [Suspect]
     Active Substance: DOCETAXEL
     Indication: BREAST CANCER
     Dosage: 137 MG, UNK
     Route: 042
     Dates: start: 20100427, end: 20100427
  2. ADVAIR HFA [Concomitant]
     Active Substance: FLUTICASONE PROPIONATE\SALMETEROL XINAFOATE
     Dosage: UNK
     Dates: start: 20080101
  3. ADRIAMYCIN [DOXORUBICIN HYDROCHLORIDE] [Concomitant]
  4. HERCEPTIN [Concomitant]
     Active Substance: TRASTUZUMAB
  5. APREPITANT. [Concomitant]
     Active Substance: APREPITANT
  6. CYTOXAN [Concomitant]
     Active Substance: CYCLOPHOSPHAMIDE
     Dosage: 917 MG
  7. ROCEPHIN [Concomitant]
     Active Substance: CEFTRIAXONE SODIUM
  8. NEULASTA [Concomitant]
     Active Substance: PEGFILGRASTIM
  9. NEXIUM [Concomitant]
     Active Substance: ESOMEPRAZOLE MAGNESIUM
     Dosage: UNK
     Dates: start: 20080101, end: 20161231
  10. DECADRON [DEXAMETHASONE ACETATE] [Concomitant]
  11. NEUPOGEN [Concomitant]
     Active Substance: FILGRASTIM
  12. NEOSAR [Concomitant]
     Active Substance: CYCLOPHOSPHAMIDE
  13. TAXOTERE [Suspect]
     Active Substance: DOCETAXEL
     Dosage: 137 UNK
     Route: 042
     Dates: start: 20100810, end: 20100810
  14. ALOXI [Concomitant]
     Active Substance: PALONOSETRON HYDROCHLORIDE
  15. NEXIUM [Concomitant]
     Active Substance: ESOMEPRAZOLE MAGNESIUM
     Dosage: UNK
     Dates: start: 20080101, end: 20161231

REACTIONS (1)
  - Alopecia [Recovering/Resolving]

NARRATIVE: CASE EVENT DATE: 20100601
